FAERS Safety Report 6612403-5 (Version None)
Quarter: 2010Q1

REPORT INFORMATION
  Report Type: 
  Country: None (occurrence: None)
  Receive Date: 20100303
  Receipt Date: 20100219
  Transmission Date: 20100710
  Serious: Yes (Hospitalization, Other)
  Sender: FDA-Public Use
  Company Number: PHHY2009MX41375

PATIENT
  Age: 74 Year
  Sex: Female

DRUGS (2)
  1. CO-DIOVAN [Suspect]
     Indication: HYPERTENSION
     Dosage: 1 TABLET PER DAY (160/12.5 MG)
     Route: 048
     Dates: start: 20060801, end: 20100201
  2. GLIMETAL [Concomitant]

REACTIONS (4)
  - ARRHYTHMIA [None]
  - CHEST DISCOMFORT [None]
  - GALLBLADDER OPERATION [None]
  - HYPERHIDROSIS [None]
